FAERS Safety Report 4707565-0 (Version None)
Quarter: 2005Q3

REPORT INFORMATION
  Report Type: 
  Country: None (occurrence: None)
  Receive Date: 20050706
  Receipt Date: 20050526
  Transmission Date: 20060218
  Serious: Yes (Other)
  Sender: FDA-Public Use
  Company Number: US-JNJFOC-20050506950

PATIENT
  Sex: Male
  Weight: 106.6 kg

DRUGS (7)
  1. FENTANYL [Suspect]
     Route: 062
     Dates: start: 20050524, end: 20050529
  2. AMITRIPTYLINE [Concomitant]
     Indication: INSOMNIA
     Dosage: TAKE AT BEDTIME
     Route: 049
  3. NEURONTIN [Concomitant]
     Indication: VERTIGO
     Route: 049
  4. CELEBREX [Concomitant]
     Route: 049
  5. PRILOSEC [Concomitant]
     Indication: GASTROINTESTINAL DISORDER
     Route: 049
  6. LEXAPRO [Concomitant]
     Indication: DEPRESSION
     Dosage: TWO TABLETS IN AM
     Route: 049
  7. HYDROCODONE [Concomitant]
     Indication: PAIN
     Route: 049
     Dates: start: 20050530

REACTIONS (4)
  - ANXIETY [None]
  - INAPPROPRIATE SCHEDULE OF DRUG ADMINISTRATION [None]
  - SOMNOLENCE [None]
  - SUICIDAL IDEATION [None]
